FAERS Safety Report 6134552-0 (Version None)
Quarter: 2009Q1

REPORT INFORMATION
  Report Type: 
  Country: None (occurrence: None)
  Receive Date: 20090327
  Receipt Date: 20090324
  Transmission Date: 20090719
  Serious: Yes (Other)
  Sender: FDA-Public Use
  Company Number: JP-BRISTOL-MYERS SQUIBB COMPANY-14559835

PATIENT
  Age: 69 Year
  Sex: Male

DRUGS (2)
  1. TAXOL [Suspect]
     Indication: NON-SMALL CELL LUNG CANCER
     Dosage: STARTED ON 04FEB09
     Route: 041
     Dates: start: 20090204, end: 20090303
  2. PARAPLATIN [Suspect]
     Indication: NON-SMALL CELL LUNG CANCER
     Dosage: STARTED ON 04FEB09
     Route: 041
     Dates: start: 20090204, end: 20090303

REACTIONS (1)
  - STEVENS-JOHNSON SYNDROME [None]
